FAERS Safety Report 20429695 (Version 1)
Quarter: 2022Q1

REPORT INFORMATION
  Report Type: Report from Study
  Country: FR (occurrence: FR)
  Receive Date: 20220204
  Receipt Date: 20220204
  Transmission Date: 20220423
  Serious: Yes (Hospitalization)
  Sender: FDA-Public Use
  Company Number: FR-SERVIER-S19010426

PATIENT

DRUGS (8)
  1. ONCASPAR [Suspect]
     Active Substance: PEGASPARGASE
     Indication: Acute lymphocytic leukaemia
     Dosage: 2325 IU, ON D15, D43
     Route: 042
     Dates: start: 20190619, end: 20190719
  2. CYCLOPHOSPHAMIDE [Suspect]
     Active Substance: CYCLOPHOSPHAMIDE
     Indication: Acute lymphocytic leukaemia
     Dosage: 940 MG ON D1, D29
     Route: 042
     Dates: start: 20190606, end: 20190703
  3. CYTARABINE [Suspect]
     Active Substance: CYTARABINE
     Indication: Acute lymphocytic leukaemia
     Dosage: 30 MG
     Route: 037
     Dates: start: 20190608, end: 20190705
  4. CYTARABINE [Suspect]
     Active Substance: CYTARABINE
     Dosage: 70 MG QD FROM D3 TO D6, FROM D10 TO D13, FROM D31 TO D34 AND FROM D38 TO D41
     Route: 042
     Dates: start: 20190608, end: 20190715
  5. HYDROCORTISONE [Suspect]
     Active Substance: HYDROCORTISONE
     Indication: Acute lymphocytic leukaemia
     Dosage: 15 MG, ON D3, D31
     Route: 037
     Dates: start: 20190608, end: 20190705
  6. METHOTREXATE [Suspect]
     Active Substance: METHOTREXATE
     Indication: Acute lymphocytic leukaemia
     Dosage: 15 MG ON D3, D31
     Route: 037
     Dates: start: 20190608, end: 20190705
  7. VINCRISTINE [Suspect]
     Active Substance: VINCRISTINE
     Indication: Acute lymphocytic leukaemia
     Dosage: 1.4 MG, ON D15, D22, D43, D50
     Route: 042
     Dates: start: 20190619, end: 20190725
  8. MERCAPTOPURINE [Suspect]
     Active Substance: MERCAPTOPURINE
     Indication: Acute lymphocytic leukaemia
     Dosage: 50 MG QD FROM D1 TO D14, ON D29, D42
     Route: 048
     Dates: start: 20190606, end: 20190717

REACTIONS (1)
  - Escherichia sepsis [Recovered/Resolved]

NARRATIVE: CASE EVENT DATE: 20190728
